FAERS Safety Report 24549870 (Version 1)
Quarter: 2024Q4

REPORT INFORMATION
  Report Type: Spontaneous
  Country: KR (occurrence: KR)
  Receive Date: 20241025
  Receipt Date: 20241025
  Transmission Date: 20250115
  Serious: Yes (Life-Threatening, Hospitalization, Other)
  Sender: FRESENIUS KABI
  Company Number: KR-FreseniusKabi-FK202415939

PATIENT
  Age: 59 Year
  Sex: Male
  Weight: 72 kg

DRUGS (5)
  1. PROPOFOL [Suspect]
     Active Substance: PROPOFOL
     Indication: Anaesthesia
     Route: 042
  2. ROCURONIUM BROMIDE [Concomitant]
     Active Substance: ROCURONIUM BROMIDE
     Indication: Anaesthesia
     Route: 042
  3. SEVOFLURANE [Concomitant]
     Active Substance: SEVOFLURANE
     Indication: Anaesthesia
     Dosage: 1.8 VOL PERCENT
  4. REMIFENTANIL [Concomitant]
     Active Substance: REMIFENTANIL
     Indication: Anaesthesia
     Dosage: 0.1?0.2 MG/H.
  5. CEFAZOLIN [Concomitant]
     Active Substance: CEFAZOLIN
     Indication: Product used for unknown indication
     Dosage: INTRAVENOUSLY ~30 MIN AFTER INDUCTION.
     Route: 042

REACTIONS (2)
  - Anaphylactic shock [Recovering/Resolving]
  - Cardiac arrest [Recovered/Resolved]
